FAERS Safety Report 7967259-5 (Version None)
Quarter: 2011Q4

REPORT INFORMATION
  Report Type: 
  Country: None (occurrence: None)
  Receive Date: 20111206
  Receipt Date: 20111130
  Transmission Date: 20120403
  Serious: Yes (Other)
  Sender: FDA-Public Use
  Company Number: AUR-APL-2011-06018

PATIENT
  Age: 40 Year
  Sex: Female
  Weight: 90.7194 kg

DRUGS (1)
  1. CIPROFLOXACIN [Suspect]
     Indication: CYSTITIS
     Dosage: 1500 MG (750 MG,2 IN 1 D),ORAL
     Route: 048
     Dates: start: 20111116, end: 20111120

REACTIONS (4)
  - FACIAL PAIN [None]
  - LOOSE TOOTH [None]
  - NERVE INJURY [None]
  - TRIGEMINAL NEURALGIA [None]
